FAERS Safety Report 11862783 (Version 1)
Quarter: 2015Q4

REPORT INFORMATION
  Report Type: Spontaneous
  Country: US (occurrence: None)
  Receive Date: 20151222
  Receipt Date: 20151222
  Transmission Date: 20160305
  Serious: Yes (Life-Threatening, Hospitalization, Disabling, Other)
  Sender: FDA-Public Use
  Company Number: None

PATIENT
  Age: 20 Year
  Sex: Female
  Weight: 74.84 kg

DRUGS (4)
  1. XANAX [Concomitant]
     Active Substance: ALPRAZOLAM
  2. NEXPLANON [Suspect]
     Active Substance: ETONOGESTREL
  3. CLONOPIN [Concomitant]
     Active Substance: CLONAZEPAM
  4. RITALIN [Concomitant]
     Active Substance: METHYLPHENIDATE HYDROCHLORIDE

REACTIONS (5)
  - Panic attack [None]
  - Suicidal ideation [None]
  - Anxiety [None]
  - Depression [None]
  - Suicide attempt [None]

NARRATIVE: CASE EVENT DATE: 20150901
